FAERS Safety Report 16023570 (Version 2)
Quarter: 2019Q1

REPORT INFORMATION
  Report Type: Spontaneous
  Country: PL (occurrence: PL)
  Receive Date: 20190301
  Receipt Date: 20190309
  Transmission Date: 20190418
  Serious: Yes (Hospitalization)
  Sender: FDA-Public Use
  Company Number: PHHY2019PL043371

PATIENT
  Age: 10 Year
  Sex: Male

DRUGS (1)
  1. AMOXICILLIN+CLAVULANIC ACID [Suspect]
     Active Substance: AMOXICILLIN\CLAVULANIC ACID
     Indication: STREPTOCOCCAL INFECTION
     Route: 065

REACTIONS (2)
  - Therapy non-responder [Unknown]
  - Abnormal behaviour [Unknown]
